FAERS Safety Report 18639783 (Version 1)
Quarter: 2020Q4

REPORT INFORMATION
  Report Type: Spontaneous
  Country: SE (occurrence: SE)
  Receive Date: 20201220
  Receipt Date: 20201220
  Transmission Date: 20210114
  Serious: Yes (Disabling)
  Sender: FDA-Public Use
  Company Number: NVSC2020SE332468

PATIENT
  Age: 61 Year
  Sex: Male
  Weight: 116 kg

DRUGS (1)
  1. BISOPROLOL [Suspect]
     Active Substance: BISOPROLOL
     Indication: ARRHYTHMIA
     Dosage: DOSERING 2.5 MG VID HJARTRUSNING
     Route: 065
     Dates: start: 20200301

REACTIONS (5)
  - Nightmare [Recovering/Resolving]
  - Anxiety [Recovering/Resolving]
  - Diarrhoea [Recovering/Resolving]
  - Pruritus [Recovering/Resolving]
  - Fatigue [Recovering/Resolving]

NARRATIVE: CASE EVENT DATE: 20200301
